FAERS Safety Report 5900536-8 (Version None)
Quarter: 2008Q3

REPORT INFORMATION
  Report Type: 
  Country: None (occurrence: None)
  Receive Date: 20080926
  Receipt Date: 20080916
  Transmission Date: 20090109
  Serious: No
  Sender: FDA-Public Use
  Company Number: US-B.I. PHARMACEUTICALS,INC./RIDGEFIELD-2008-BP-12289BP

PATIENT
  Age: 64 Year
  Sex: Male

DRUGS (4)
  1. MIRAPEX [Suspect]
     Indication: PARKINSON'S DISEASE
     Route: 048
     Dates: start: 20050301, end: 20080710
  2. SELEGILINE HCL [Concomitant]
     Dosage: 10MG
     Route: 048
     Dates: start: 20050221
  3. CARBIDOPA AND LEVODOPA [Concomitant]
     Dates: start: 20070516
  4. AMANTADINE [Concomitant]
     Dosage: 100MG

REACTIONS (2)
  - ARTHRALGIA [None]
  - COGNITIVE DISORDER [None]
